FAERS Safety Report 7280500-X (Version None)
Quarter: 2011Q1

REPORT INFORMATION
  Report Type: 
  Country: None (occurrence: None)
  Receive Date: 20110131
  Receipt Date: 20101231
  Transmission Date: 20110831
  Serious: Yes (Death)
  Sender: FDA-Public Use
  Company Number: AUR-APL-2011-00100

PATIENT
  Age: 41 Year
  Sex: Female

DRUGS (5)
  1. CARISOPRODOL [Suspect]
  2. METFORMIN [Suspect]
  3. ALPRAZOLAM [Suspect]
  4. OXYCODONE [Suspect]
  5. METHAMPHETAMINE HYDROCHLORIDE [Suspect]

REACTIONS (3)
  - TOXICITY TO VARIOUS AGENTS [None]
  - CARDIAC ARREST [None]
  - RESPIRATORY ARREST [None]
